FAERS Safety Report 15807631 (Version 2)
Quarter: 2019Q1

REPORT INFORMATION
  Report Type: Spontaneous
  Country: CZ (occurrence: CZ)
  Receive Date: 20190110
  Receipt Date: 20190125
  Transmission Date: 20190417
  Serious: Yes (Hospitalization, Other)
  Sender: FDA-Public Use
  Company Number: CZ-MYLANLABS-2018M1071093

PATIENT
  Age: 63 Year
  Sex: Female

DRUGS (1)
  1. WARFARIN [Suspect]
     Active Substance: WARFARIN
     Indication: ANTICOAGULANT THERAPY
     Dosage: FOR MANY YEARS
     Route: 065

REACTIONS (8)
  - Erythema [Recovering/Resolving]
  - Oedema [Recovering/Resolving]
  - Petechiae [Recovering/Resolving]
  - Necrosis [Recovering/Resolving]
  - Pain in extremity [Recovering/Resolving]
  - Ecchymosis [Recovering/Resolving]
  - Peripheral ischaemia [Recovering/Resolving]
  - Blister [Recovering/Resolving]
